FAERS Safety Report 6701728-0 (Version None)
Quarter: 2010Q2

REPORT INFORMATION
  Report Type: 
  Country: None (occurrence: None)
  Receive Date: 20100429
  Receipt Date: 20100416
  Transmission Date: 20101027
  Serious: Yes (Hospitalization)
  Sender: FDA-Public Use
  Company Number: US-SANOFI-AVENTIS-2009SA007645

PATIENT
  Age: 90 Year
  Sex: Male
  Weight: 89.5 kg

DRUGS (2)
  1. MULTAQ [Suspect]
     Route: 048
     Dates: start: 20090831, end: 20090917
  2. NIFEDIPINE [Concomitant]

REACTIONS (7)
  - ACUTE PULMONARY OEDEMA [None]
  - CARDIAC FAILURE CONGESTIVE [None]
  - COUGH [None]
  - DYSPNOEA [None]
  - OEDEMA PERIPHERAL [None]
  - WEIGHT INCREASED [None]
  - WHEEZING [None]
